FAERS Safety Report 7596406-2 (Version None)
Quarter: 2011Q3

REPORT INFORMATION
  Report Type: 
  Country: None (occurrence: None)
  Receive Date: 20110707
  Receipt Date: 20110627
  Transmission Date: 20111222
  Serious: Yes (Other)
  Sender: FDA-Public Use
  Company Number: US-AMGEN-USASP2011032947

PATIENT
  Age: 56 Year
  Sex: Female

DRUGS (2)
  1. ENBREL [Suspect]
     Indication: PSORIATIC ARTHROPATHY
     Dosage: 50 MG, QWK
     Dates: start: 20040401
  2. METHOTREXATE [Concomitant]
     Dosage: 6 MG, QWK
     Dates: start: 19890101

REACTIONS (2)
  - TOOTH INFECTION [None]
  - HEPATIC STEATOSIS [None]
